FAERS Safety Report 22518540 (Version 1)
Quarter: 2023Q2

REPORT INFORMATION
  Report Type: Spontaneous
  Country: US (occurrence: US)
  Receive Date: 20230605
  Receipt Date: 20230605
  Transmission Date: 20230722
  Serious: Yes (Other)
  Sender: FDA-Public Use
  Company Number: US-AUROBINDO-AUR-APL-2023-040358

PATIENT

DRUGS (1)
  1. CLONIDINE [Suspect]
     Active Substance: CLONIDINE
     Indication: Foetal exposure during pregnancy
     Dosage: UNK
     Route: 065

REACTIONS (2)
  - Foetal distress syndrome [Unknown]
  - Heart rate decreased [Unknown]
